FAERS Safety Report 10241130 (Version 1)
Quarter: 2014Q2

REPORT INFORMATION
  Report Type: Spontaneous
  Country: US (occurrence: US)
  Receive Date: 20140617
  Receipt Date: 20140617
  Transmission Date: 20141212
  Serious: No
  Sender: FDA-Public Use
  Company Number: US-BAYER-2014-090652

PATIENT
  Age: 76 Year
  Sex: Female

DRUGS (2)
  1. GADAVIST [Suspect]
     Dosage: UNK UNK, ONCE
     Dates: start: 20140611, end: 20140611
  2. PREDNISONE [Concomitant]

REACTIONS (1)
  - Urticaria [None]
